FAERS Safety Report 6129626-4 (Version None)
Quarter: 2009Q1

REPORT INFORMATION
  Report Type: 
  Country: None (occurrence: None)
  Receive Date: 20090324
  Receipt Date: 20090312
  Transmission Date: 20090719
  Serious: Yes (Other)
  Sender: FDA-Public Use
  Company Number: FR-SANOFI-SYNTHELABO-A01200902844

PATIENT
  Age: 85 Year
  Sex: Male

DRUGS (6)
  1. ACETYLSALICYLATE LYSINE [Concomitant]
     Dosage: UNK
  2. CEFTOXAMINE SODIUM [Concomitant]
     Dosage: UNK
  3. NAFTIDROFURYL OXALATE [Concomitant]
     Dosage: UNK
  4. ATORVASTATIN CALCIUM [Concomitant]
     Dosage: UNK
     Route: 048
  5. BICALUTAMIDE [Concomitant]
     Indication: PROSTATE CANCER
     Dosage: UNK
     Dates: start: 20080101
  6. ELIGARD [Suspect]
     Indication: PROSTATE CANCER
     Dosage: 22.5 MG
     Route: 058
     Dates: start: 20080101

REACTIONS (4)
  - HALLUCINATION [None]
  - MEMORY IMPAIRMENT [None]
  - PARAESTHESIA [None]
  - SLEEP DISORDER [None]
